FAERS Safety Report 5000005-6 (Version None)
Quarter: 2006Q2

REPORT INFORMATION
  Report Type: 
  Country: None (occurrence: None)
  Receive Date: 20060510
  Receipt Date: 20060510
  Transmission Date: 20061013
  Serious: Yes (Life-Threatening, Hospitalization)
  Sender: FDA-Public Use
  Company Number: None

PATIENT
  Age: 21 Year
  Sex: Female
  Weight: 75.4 kg

DRUGS (3)
  1. ACETAMINOPHEN [Suspect]
     Dosage: 650 MG X 12 TABS PO ONCE
     Route: 048
     Dates: start: 20060301
  2. ESCITALOPRAM OXALATE [Concomitant]
  3. ZOLPIDEM TARTRATE [Concomitant]

REACTIONS (5)
  - ALCOHOL USE [None]
  - DRUG ABUSER [None]
  - FATIGUE [None]
  - INCORRECT DOSE ADMINISTERED [None]
  - SOMNOLENCE [None]
